FAERS Safety Report 7213658-9 (Version None)
Quarter: 2011Q1

REPORT INFORMATION
  Report Type: 
  Country: None (occurrence: None)
  Receive Date: 20110106
  Receipt Date: 20101231
  Transmission Date: 20110831
  Serious: Yes (Hospitalization)
  Sender: FDA-Public Use
  Company Number: US-US-EMD SERONO, INC.-7006570

PATIENT
  Sex: Female
  Weight: 83 kg

DRUGS (5)
  1. POTASSIUM [Concomitant]
     Indication: PROPHYLAXIS
  2. ASPIRIN [Concomitant]
     Indication: PROPHYLAXIS
  3. LABETALOL [Concomitant]
     Indication: SUPRAVENTRICULAR TACHYCARDIA
  4. LASIX [Concomitant]
     Indication: PROPHYLAXIS
  5. REBIF [Suspect]
     Indication: MULTIPLE SCLEROSIS
     Route: 058
     Dates: start: 20081222

REACTIONS (7)
  - NASOPHARYNGITIS [None]
  - CORONARY ARTERY OCCLUSION [None]
  - HYPOTHYROIDISM [None]
  - MUSCLE SPASMS [None]
  - PAIN IN EXTREMITY [None]
  - CHEST PAIN [None]
  - BLOOD CHOLESTEROL INCREASED [None]
